FAERS Safety Report 6872039-8 (Version None)
Quarter: 2010Q3

REPORT INFORMATION
  Report Type: 
  Country: None (occurrence: None)
  Receive Date: 20100723
  Receipt Date: 20100712
  Transmission Date: 20110219
  Serious: Yes (Life-Threatening, Hospitalization)
  Sender: FDA-Public Use
  Company Number: TW-PFIZER INC-2010086430

PATIENT
  Age: 92 Year
  Sex: Female
  Weight: 50 kg

DRUGS (1)
  1. DILANTIN [Suspect]
     Indication: SUBARACHNOID HAEMORRHAGE
     Dosage: 100 MG, 3X/DAY
     Route: 048
     Dates: start: 20100614

REACTIONS (3)
  - BRADYARRHYTHMIA [None]
  - CARDIOGENIC SHOCK [None]
  - OVERDOSE [None]
